FAERS Safety Report 16215333 (Version 2)
Quarter: 2019Q2

REPORT INFORMATION
  Report Type: Spontaneous
  Country: US (occurrence: US)
  Receive Date: 20190419
  Receipt Date: 20190516
  Transmission Date: 20190711
  Serious: No
  Sender: FDA-Public Use
  Company Number: US-B.I. PHARMACEUTICALS,INC./RIDGEFIELD-2019-BI-017230

PATIENT
  Sex: Female

DRUGS (1)
  1. SPIRIVA [Suspect]
     Active Substance: TIOTROPIUM BROMIDE MONOHYDRATE
     Indication: CHRONIC OBSTRUCTIVE PULMONARY DISEASE
     Dosage: ONE CAPSULE A DAY;  FORM STRENGTH: 18 MCG; FORM: CAPSULE  NO ACTION(S) TAKEN: DOSE NOT CHANGED
     Route: 055
     Dates: start: 2004

REACTIONS (4)
  - Incorrect dose administered [Unknown]
  - Product physical issue [Unknown]
  - Product quality issue [Unknown]
  - Cough [Unknown]
